FAERS Safety Report 4951471-3 (Version None)
Quarter: 2006Q1

REPORT INFORMATION
  Report Type: 
  Country: None (occurrence: None)
  Receive Date: 20060317
  Receipt Date: 20060308
  Transmission Date: 20060701
  Serious: Yes (Other)
  Sender: FDA-Public Use
  Company Number: HQWYE302313MAR06

PATIENT
  Age: 49 Year
  Sex: Female

DRUGS (8)
  1. RAPAMUNE [Suspect]
     Indication: PROPHYLAXIS AGAINST TRANSPLANT REJECTION
     Dosage: 2 MG 1X PER 1 DAY
     Route: 048
     Dates: start: 20050101
  2. PREDNISONE TAB [Concomitant]
  3. LIPITOR [Concomitant]
  4. ATACAND [Concomitant]
  5. TENORMIN [Concomitant]
  6. ADALAT [Concomitant]
  7. CALTRATE (CALCIUM CARBONATE) [Concomitant]
  8. CORTISONE ACETATE [Concomitant]

REACTIONS (2)
  - TENDON DISORDER [None]
  - TENDON INJURY [None]
